FAERS Safety Report 21181867 (Version 2)
Quarter: 2022Q3

REPORT INFORMATION
  Report Type: Report from Study
  Country: CA (occurrence: CA)
  Receive Date: 20220806
  Receipt Date: 20220914
  Transmission Date: 20221026
  Serious: Yes (Other)
  Sender: FDA-Public Use
  Company Number: CA-HLS-202201418

PATIENT
  Age: 18 Year
  Sex: Male

DRUGS (1)
  1. CLOZARIL [Suspect]
     Active Substance: CLOZAPINE
     Indication: Product used for unknown indication
     Dosage: UNKNOWN
     Route: 048
     Dates: start: 20220301, end: 20220724

REACTIONS (2)
  - Neutropenia [Recovered/Resolved]
  - Autism spectrum disorder [Unknown]

NARRATIVE: CASE EVENT DATE: 20220820
